FAERS Safety Report 13106152 (Version 7)
Quarter: 2020Q3

REPORT INFORMATION
  Report Type: Spontaneous
  Country: US (occurrence: US)
  Receive Date: 20170111
  Receipt Date: 20200721
  Transmission Date: 20201102
  Serious: Yes (Other)
  Sender: FDA-Public Use
  Company Number: US-PFIZER INC-2017007803

PATIENT
  Age: 61 Year
  Sex: Male
  Weight: 95.25 kg

DRUGS (3)
  1. RAPAMUNE [Suspect]
     Active Substance: SIROLIMUS
     Indication: LIVER TRANSPLANT
     Dosage: 1 MG, 1X/DAY
     Route: 048
     Dates: start: 200401
  2. RAPAMUNE [Suspect]
     Active Substance: SIROLIMUS
     Indication: IMMUNOSUPPRESSION
  3. RAPAMUNE [Suspect]
     Active Substance: SIROLIMUS
     Indication: TRANSPLANT REJECTION
     Dosage: 0.5 MG, 1X/DAY
     Route: 048
     Dates: start: 200401

REACTIONS (4)
  - Product use in unapproved indication [Unknown]
  - Off label use [Unknown]
  - Laboratory test abnormal [Unknown]
  - Hepatitis C [Unknown]

NARRATIVE: CASE EVENT DATE: 20161209
